FAERS Safety Report 20487099 (Version 2)
Quarter: 2022Q1

REPORT INFORMATION
  Report Type: Spontaneous
  Country: CO (occurrence: CO)
  Receive Date: 20220217
  Receipt Date: 20220305
  Transmission Date: 20220423
  Serious: Yes (Disabling, Other)
  Sender: FDA-Public Use
  Company Number: CO-NOVARTISPH-NVSC2022CO036278

PATIENT
  Age: 90 Year
  Sex: Female

DRUGS (2)
  1. DIOVAN [Suspect]
     Active Substance: VALSARTAN
     Indication: Blood pressure increased
     Dosage: UNK (STARTED MORE THAN A DECADE AGO
     Route: 065
  2. DIOVAN [Suspect]
     Active Substance: VALSARTAN
     Dosage: 40 MG (STARTED 20 YEARS AGO APPROXIMATELY)
     Route: 065

REACTIONS (8)
  - Diabetes mellitus [Unknown]
  - Hypothyroidism [Unknown]
  - Motor dysfunction [Unknown]
  - Anxiety [Unknown]
  - Restlessness [Unknown]
  - Skin fragility [Unknown]
  - Intervertebral disc disorder [Unknown]
  - Wrong technique in product usage process [Unknown]
